FAERS Safety Report 7101208-7 (Version None)
Quarter: 2010Q4

REPORT INFORMATION
  Report Type: 
  Country: None (occurrence: None)
  Receive Date: 20101115
  Receipt Date: 20101101
  Transmission Date: 20110411
  Serious: Yes (Death)
  Sender: FDA-Public Use
  Company Number: US-JNJFOC-20090704284

PATIENT
  Sex: Male
  Weight: 97.07 kg

DRUGS (7)
  1. DURAGESIC-100 [Suspect]
     Indication: PAIN
     Route: 062
  2. DESMETHYLDIAZEPAM [Concomitant]
  3. TOPIRAMATE [Concomitant]
  4. DIAZEPAM [Concomitant]
  5. CAFFEINE [Concomitant]
  6. LAMOTRIGINE [Concomitant]
  7. SERTRALINE HYDROCHLORIDE [Concomitant]

REACTIONS (6)
  - NARCOTIC INTOXICATION [None]
  - PRODUCT QUALITY ISSUE [None]
  - SKIN IRRITATION [None]
  - SLEEP APNOEA SYNDROME [None]
  - SOMNAMBULISM [None]
  - WITHDRAWAL SYNDROME [None]
